FAERS Safety Report 6831378-7 (Version None)
Quarter: 2010Q3

REPORT INFORMATION
  Report Type: 
  Country: None (occurrence: None)
  Receive Date: 20100712
  Receipt Date: 20100702
  Transmission Date: 20110219
  Serious: Yes (Other)
  Sender: FDA-Public Use
  Company Number: IE-AMGEN-QUU421921

PATIENT
  Sex: Female

DRUGS (10)
  1. NEULASTA [Suspect]
     Indication: CHEMOTHERAPY
     Route: 058
     Dates: start: 20100630
  2. ZOFRAN [Concomitant]
  3. DEXAMETHASONE ACETATE [Concomitant]
  4. PLAVIX [Concomitant]
  5. ZOCOR [Concomitant]
  6. MOTILIUM [Concomitant]
  7. IXPRIM [Concomitant]
  8. ADRIAMYCIN PFS [Concomitant]
  9. CYTOXAN [Concomitant]
  10. TAXOL [Concomitant]

REACTIONS (3)
  - DYSPNOEA [None]
  - HYPERSENSITIVITY [None]
  - TREMOR [None]
